FAERS Safety Report 6582171-4 (Version None)
Quarter: 2010Q1

REPORT INFORMATION
  Report Type: 
  Country: None (occurrence: None)
  Receive Date: 20100216
  Receipt Date: 20091215
  Transmission Date: 20100710
  Serious: No
  Sender: FDA-Public Use
  Company Number: US-JNJFOC-20100205905

PATIENT
  Sex: Female

DRUGS (1)
  1. DURAGESIC-100 [Suspect]
     Indication: PAIN
     Route: 065

REACTIONS (3)
  - DYSPNOEA [None]
  - HYPERSOMNIA [None]
  - TREATMENT NONCOMPLIANCE [None]
